FAERS Safety Report 19501421 (Version 1)
Quarter: 2021Q3

REPORT INFORMATION
  Report Type: Spontaneous
  Country: FR (occurrence: FR)
  Receive Date: 20210707
  Receipt Date: 20210707
  Transmission Date: 20211014
  Serious: Yes (Hospitalization)
  Sender: FDA-Public Use
  Company Number: FR-TEVA-2021-FR-1930011

PATIENT
  Age: 28 Year
  Sex: Female
  Weight: 115 kg

DRUGS (5)
  1. CHLORHYDRATE DE TRAMADOL [Suspect]
     Active Substance: TRAMADOL HYDROCHLORIDE
     Dosage: 3250MILLIGRAM
     Route: 048
     Dates: start: 20210429
  2. BRINTELLIX [Suspect]
     Active Substance: VORTIOXETINE HYDROBROMIDE
     Dosage: 280MILLIGRAM
     Route: 048
     Dates: start: 20210429
  3. ACUPAN [Suspect]
     Active Substance: NEFOPAM HYDROCHLORIDE
     Dosage: 20MILLIGRAM
     Route: 048
     Dates: start: 20210429
  4. OXYCODONE (CHLORHYDRATE DE) [Suspect]
     Active Substance: OXYCODONE HYDROCHLORIDE
     Dosage: 70MILLIGRAM
     Route: 048
     Dates: start: 20210429
  5. ZOPICLONE [Suspect]
     Active Substance: ZOPICLONE
     Dosage: 105MILLIGRAM
     Route: 048
     Dates: start: 20210429

REACTIONS (1)
  - Coma [Recovered/Resolved]

NARRATIVE: CASE EVENT DATE: 20210429
